FAERS Safety Report 24890669 (Version 1)
Quarter: 2025Q1

REPORT INFORMATION
  Report Type: Spontaneous
  Country: US (occurrence: None)
  Receive Date: 20250127
  Receipt Date: 20250127
  Transmission Date: 20250408
  Serious: Yes (Hospitalization)
  Sender: FDA-CTU
  Company Number: None

PATIENT
  Sex: Male

DRUGS (2)
  1. EVEROLIMUS [Suspect]
     Active Substance: EVEROLIMUS
     Indication: Tuberous sclerosis complex
     Dosage: 2.5 MG DAILY PO
     Route: 048
     Dates: start: 202410
  2. VIGABATRIN [Concomitant]
     Active Substance: VIGABATRIN

REACTIONS (6)
  - Seizure [None]
  - Illness [None]
  - Immunodeficiency [None]
  - Pyrexia [None]
  - Nausea [None]
  - Vomiting [None]
